FAERS Safety Report 4509163-0 (Version None)
Quarter: 2005Q1

REPORT INFORMATION
  Report Type: 
  Country: None (occurrence: None)
  Receive Date: 20041025
  Receipt Date: 20040806
  Transmission Date: 20050727
  Serious: Yes (Hospitalization)
  Sender: FDA-Public Use
  Company Number: US-JNJFOC-20040802561

PATIENT
  Age: 69 Year
  Sex: Male

DRUGS (7)
  1. INFLIXIMAB (INFLIXIMAB, RECOMBINANT) LYOPHILIZED POWDER [Suspect]
     Indication: RHEUMATOID ARTHRITIS
     Dosage: INTRAVENOUS
     Route: 042
     Dates: start: 20040122, end: 20010701
  2. TYLENOL [Concomitant]
  3. ATENOLOL [Concomitant]
  4. FUROSEMIDE [Concomitant]
  5. PLAQUENIL [Concomitant]
  6. PREDNISONE [Concomitant]
  7. HUMIRA [Concomitant]

REACTIONS (1)
  - PNEUMONIA STAPHYLOCOCCAL [None]
